FAERS Safety Report 6974351-0 (Version None)
Quarter: 2010Q3

REPORT INFORMATION
  Report Type: 
  Country: None (occurrence: None)
  Receive Date: 20100909
  Receipt Date: 20100901
  Transmission Date: 20110219
  Serious: Yes (Hospitalization)
  Sender: FDA-Public Use
  Company Number: PHHY2010US58008

PATIENT

DRUGS (1)
  1. CLOZARIL [Suspect]

REACTIONS (5)
  - ATAXIA [None]
  - DROOLING [None]
  - DRUG TOXICITY [None]
  - DYSARTHRIA [None]
  - EATING DISORDER [None]
